FAERS Safety Report 18545511 (Version 3)
Quarter: 2020Q4

REPORT INFORMATION
  Report Type: Spontaneous
  Country: JP (occurrence: JP)
  Receive Date: 20201125
  Receipt Date: 20201215
  Transmission Date: 20210114
  Serious: Yes (Life-Threatening, Other)
  Sender: FDA-Public Use
  Company Number: JP-BAYER-2020-249985

PATIENT
  Age: 72 Year
  Sex: Female
  Weight: 45 kg

DRUGS (6)
  1. STIVARGA [Suspect]
     Active Substance: REGORAFENIB
     Indication: RECTAL CANCER RECURRENT
     Dosage: DAILY DOSE 40 MG
     Route: 048
     Dates: start: 20200609, end: 20200615
  2. LUNESTA [Concomitant]
     Active Substance: ESZOPICLONE
     Dosage: BEFORE SLEEP, DAILY DOSE 1 MG
  3. AMLODIPINE OD TYK [Concomitant]
     Active Substance: AMLODIPINE BESYLATE
     Dosage: AFTER BREAKFAST, DAILY DOSE 2.5MG
  4. IRINOTECAN [Concomitant]
     Active Substance: IRINOTECAN
  5. STIVARGA [Suspect]
     Active Substance: REGORAFENIB
     Indication: RECTAL CANCER RECURRENT
     Dosage: 80 MG, QD
     Route: 048
     Dates: start: 20200522, end: 20200528
  6. BEVACIZUMAB. [Concomitant]
     Active Substance: BEVACIZUMAB

REACTIONS (10)
  - Palpitations [Recovered/Resolved]
  - Off label use [None]
  - Dysphonia [Not Recovered/Not Resolved]
  - Paralysis recurrent laryngeal nerve [Not Recovered/Not Resolved]
  - Proteinuria [Recovering/Resolving]
  - Dyspnoea [Not Recovered/Not Resolved]
  - Vocal cord dysfunction [Not Recovered/Not Resolved]
  - Obstructive airways disorder [Not Recovered/Not Resolved]
  - Vocal cord paralysis [Not Recovered/Not Resolved]
  - Respiratory failure [Recovered/Resolved]

NARRATIVE: CASE EVENT DATE: 20200522
